FAERS Safety Report 15954967 (Version 2)
Quarter: 2019Q1

REPORT INFORMATION
  Report Type: Spontaneous
  Country: US (occurrence: US)
  Receive Date: 20190213
  Receipt Date: 20190228
  Transmission Date: 20190417
  Serious: No
  Sender: FDA-Public Use
  Company Number: US-TEVA-2019-US-1006390

PATIENT
  Age: 68 Year
  Sex: Female

DRUGS (1)
  1. CLONIDINE ACTAVIS [Suspect]
     Active Substance: CLONIDINE
     Indication: HYPERTENSION
     Dosage: CLONIDINE 0.2 MG / DAY
     Route: 062

REACTIONS (4)
  - Drug hypersensitivity [Unknown]
  - Application site pruritus [Unknown]
  - Product quality issue [Unknown]
  - Adverse reaction [Unknown]

NARRATIVE: CASE EVENT DATE: 201812
